FAERS Safety Report 25646646 (Version 1)
Quarter: 2025Q3

REPORT INFORMATION
  Report Type: Report from Study
  Country: CA (occurrence: CA)
  Receive Date: 20250805
  Receipt Date: 20250805
  Transmission Date: 20251020
  Serious: Yes (Hospitalization)
  Sender: SERVIER
  Company Number: CA-SERVIER-S25008207

PATIENT

DRUGS (1)
  1. VORASIDENIB [Suspect]
     Active Substance: VORASIDENIB
     Indication: Oligodendroglioma
     Dosage: 40 MG, QD
     Route: 048
     Dates: start: 20250512

REACTIONS (8)
  - Surgery [Recovered/Resolved]
  - Hospitalisation [Recovered/Resolved]
  - Fatigue [Unknown]
  - Somnolence [Unknown]
  - Speech disorder [Unknown]
  - Increased appetite [Not Recovered/Not Resolved]
  - Mobility decreased [Not Recovered/Not Resolved]
  - Contusion [Unknown]

NARRATIVE: CASE EVENT DATE: 20250101
